FAERS Safety Report 6227385-8 (Version None)
Quarter: 2009Q2

REPORT INFORMATION
  Report Type: 
  Country: None (occurrence: None)
  Receive Date: 20090610
  Receipt Date: 20090604
  Transmission Date: 20091009
  Serious: Yes (Hospitalization)
  Sender: FDA-Public Use
  Company Number: 2009SP010850

PATIENT
  Age: 92 Year
  Sex: Male

DRUGS (2)
  1. CLARITIN [Suspect]
     Indication: PRURITUS
     Dosage: 10 MG; ; PO
     Route: 048
     Dates: start: 20090508, end: 20090509
  2. SUNRYTHM [Concomitant]

REACTIONS (3)
  - ATRIOVENTRICULAR BLOCK SECOND DEGREE [None]
  - CONDITION AGGRAVATED [None]
  - DIZZINESS [None]
